FAERS Safety Report 15305699 (Version 2)
Quarter: 2018Q4

REPORT INFORMATION
  Report Type: Report from Study
  Country: US (occurrence: US)
  Receive Date: 20180822
  Receipt Date: 20181009
  Transmission Date: 20190204
  Serious: Yes (Hospitalization, Other)
  Sender: FDA-Public Use
  Company Number: US-BRISTOL-MYERS SQUIBB COMPANY-BMS-2018-077386

PATIENT
  Age: 51 Year
  Sex: Female
  Weight: 53.2 kg

DRUGS (2)
  1. NIVOLUMAB [Suspect]
     Active Substance: NIVOLUMAB
     Indication: MUCOEPIDERMOID CARCINOMA
     Dosage: 240 MG, Q2WK (ON DAY 1,15,29)
     Route: 042
     Dates: start: 20180124
  2. IPILIMUMAB [Suspect]
     Active Substance: IPILIMUMAB
     Indication: MUCOEPIDERMOID CARCINOMA
     Dosage: 1 MG/KG, UNK
     Route: 042
     Dates: start: 20180124

REACTIONS (3)
  - Meningitis bacterial [Unknown]
  - Encephalitis autoimmune [Recovering/Resolving]
  - Septic shock [Unknown]

NARRATIVE: CASE EVENT DATE: 20180807
